FAERS Safety Report 6566627-6 (Version None)
Quarter: 2010Q1

REPORT INFORMATION
  Report Type: 
  Country: None (occurrence: None)
  Receive Date: 20100202
  Receipt Date: 20100120
  Transmission Date: 20100710
  Serious: Yes (Hospitalization)
  Sender: FDA-Public Use
  Company Number: JP-ROCHE-676148

PATIENT
  Sex: Female

DRUGS (24)
  1. TOCILIZUMAB [Suspect]
     Indication: RHEUMATOID ARTHRITIS
     Route: 041
     Dates: start: 20090605, end: 20090605
  2. TOCILIZUMAB [Suspect]
     Route: 041
     Dates: start: 20090703, end: 20090703
  3. TOCILIZUMAB [Suspect]
     Route: 041
     Dates: start: 20090731, end: 20090731
  4. TOCILIZUMAB [Suspect]
     Route: 041
     Dates: start: 20090828, end: 20090828
  5. TOCILIZUMAB [Suspect]
     Route: 041
     Dates: start: 20090925, end: 20090925
  6. TOCILIZUMAB [Suspect]
     Route: 041
     Dates: start: 20091023, end: 20091023
  7. TOCILIZUMAB [Suspect]
     Route: 041
     Dates: start: 20091209, end: 20091209
  8. TOCILIZUMAB [Suspect]
     Route: 041
     Dates: start: 20100108
  9. ISONIAZID [Suspect]
     Indication: ANTIBIOTIC PROPHYLAXIS
     Dosage: DRUG REPORTED AS: ISCOTIN(ISONIAZID)
     Route: 048
     Dates: start: 20090522
  10. METHOTREXATE [Concomitant]
     Route: 048
     Dates: end: 20090611
  11. ISCOTIN [Concomitant]
     Route: 048
     Dates: end: 20090522
  12. PREDNISOLONE [Concomitant]
     Dosage: DOSE FORM: ORAL FORMULATION (NOT OTHERWISE SPECIFIED)
     Route: 048
     Dates: end: 20090703
  13. PREDNISOLONE [Concomitant]
     Dosage: DOSE FORM: ORAL FORMULATION (NOT OTHERWISE SPECIFIED)
     Route: 048
     Dates: start: 20090704, end: 20090731
  14. PREDNISOLONE [Concomitant]
     Dosage: DOSE FORM: ORAL FORMULATION (NOT OTHERWISE SPECIFIED)
     Route: 048
     Dates: start: 20090801, end: 20090828
  15. PREDNISOLONE [Concomitant]
     Route: 048
     Dates: start: 20090829, end: 20090925
  16. PREDNISOLONE [Concomitant]
     Dosage: DOSE FORM: ORAL FORMULATION (NOT OTHERWISE SPECIFIED)
     Route: 048
     Dates: start: 20090926
  17. AMLODIPINE [Concomitant]
     Dosage: DRUG NAME: AMLODIPINE BESILATE
     Route: 048
  18. ALENDRONATE SODIUM [Concomitant]
     Dosage: DRUG NAME: FOSAMAC 35MG(ALENDRONATE SODIUM HYDRATE)
     Route: 048
  19. TALION [Concomitant]
     Dosage: DRUG NAME REPORTED AS TALION OD(BEPOTASTINE BESILATE)
     Route: 048
  20. KLARICID [Concomitant]
     Dosage: DOSE FORM: ORAL FORMULATION (NOT OTHERWISE SPECIFIED)
     Route: 048
  21. CYTOTEC [Concomitant]
     Route: 048
  22. INDOMETACIN [Concomitant]
     Dosage: DOSE FORM: ORAL FORMULATION (NOT OTHERWISE SPECIFIED)
     Route: 048
  23. NEUROVITAN [Concomitant]
     Route: 048
  24. LANSOPRAZOLE [Concomitant]
     Dosage: DRUG REPORTED AS: TAPIZOL(LANSOPRAZOLE)
     Route: 048
     Dates: start: 20090611

REACTIONS (4)
  - BLOOD CHOLESTEROL INCREASED [None]
  - BRONCHITIS [None]
  - LIVER FUNCTION TEST ABNORMAL [None]
  - PNEUMONIA [None]
